FAERS Safety Report 10234201 (Version 3)
Quarter: 2014Q2

REPORT INFORMATION
  Report Type: Spontaneous
  Country: US (occurrence: US)
  Receive Date: 20140612
  Receipt Date: 20140618
  Transmission Date: 20141212
  Serious: Yes (Hospitalization)
  Sender: FDA-Public Use
  Company Number: US-009507513-1202USA01525

PATIENT
  Sex: Female

DRUGS (6)
  1. HYZAAR [Suspect]
     Indication: HYPERTENSION
     Dosage: 100-12.5MG ONCE DAILY
     Route: 048
  2. HYZAAR [Suspect]
     Indication: HYPERTENSION
     Dosage: 50/12.5MG
     Route: 048
  3. LABETALOL HYDROCHLORIDE [Concomitant]
  4. NORVASC [Concomitant]
  5. IMDUR [Concomitant]
     Route: 048
  6. ASPIRIN [Concomitant]

REACTIONS (8)
  - Pneumonia [Recovered/Resolved]
  - Sensation of blood flow [Recovered/Resolved]
  - Headache [Recovered/Resolved]
  - Oropharyngeal discomfort [Recovered/Resolved]
  - Sensation of blood flow [Recovered/Resolved]
  - Headache [Recovered/Resolved]
  - Oropharyngeal discomfort [Recovered/Resolved]
  - Paraesthesia oral [Recovered/Resolved]
